FAERS Safety Report 6491768-1 (Version None)
Quarter: 2009Q4

REPORT INFORMATION
  Report Type: 
  Country: None (occurrence: None)
  Receive Date: 20091210
  Receipt Date: 20091130
  Transmission Date: 20100525
  Serious: Yes (Hospitalization)
  Sender: FDA-Public Use
  Company Number: 233627J09USA

PATIENT
  Age: 36 Year
  Sex: Female

DRUGS (5)
  1. REBIF [Suspect]
     Indication: MULTIPLE SCLEROSIS
     Dosage: 44 MCG, 3 IN 1 WEEKS, SUBCUTANEOUS; 44 MCG, 3 IN 1 WEEKS, SUBCUTANEOUS
     Route: 058
     Dates: start: 20060202, end: 20090511
  2. REBIF [Suspect]
     Indication: MULTIPLE SCLEROSIS
     Dosage: 44 MCG, 3 IN 1 WEEKS, SUBCUTANEOUS; 44 MCG, 3 IN 1 WEEKS, SUBCUTANEOUS
     Route: 058
     Dates: start: 20091026
  3. NEXIUM [Concomitant]
  4. SOMA (CARISOPROLOL) [Concomitant]
  5. TIZANIDINE HCL [Concomitant]

REACTIONS (7)
  - DYSPHAGIA [None]
  - FEEDING TUBE COMPLICATION [None]
  - HYPOPHAGIA [None]
  - INCISION SITE COMPLICATION [None]
  - INTERNAL INJURY [None]
  - VAGUS NERVE DISORDER [None]
  - VOMITING [None]
